FAERS Safety Report 6121713-X (Version None)
Quarter: 2009Q1

REPORT INFORMATION
  Report Type: 
  Country: None (occurrence: None)
  Receive Date: 20090317
  Receipt Date: 20090305
  Transmission Date: 20090719
  Serious: Yes (Disabling, Other)
  Sender: FDA-Public Use
  Company Number: IE-PFIZER INC-2008020844

PATIENT

DRUGS (1)
  1. ISTIN [Suspect]
     Indication: CARDIAC MURMUR
     Dosage: DAILY: EVERY DAY
     Route: 048
     Dates: start: 20051001

REACTIONS (3)
  - BLOOD PRESSURE INCREASED [None]
  - FATIGUE [None]
  - OCULAR ICTERUS [None]
